FAERS Safety Report 7080769-0 (Version None)
Quarter: 2010Q4

REPORT INFORMATION
  Report Type: 
  Country: None (occurrence: None)
  Receive Date: 20101103
  Receipt Date: 20101021
  Transmission Date: 20110411
  Serious: Yes (Other)
  Sender: FDA-Public Use
  Company Number: GB-ACTELION-A-CH2010-40980

PATIENT
  Sex: Female

DRUGS (1)
  1. ZAVESCA [Suspect]
     Indication: GAUCHER'S DISEASE
     Dosage: UNK
     Route: 048

REACTIONS (3)
  - HIP FRACTURE [None]
  - JOINT ARTHROPLASTY [None]
  - NO THERAPEUTIC RESPONSE [None]
